FAERS Safety Report 5228020-8 (Version None)
Quarter: 2007Q1

REPORT INFORMATION
  Report Type: 
  Country: None (occurrence: None)
  Receive Date: 20061205
  Receipt Date: 20060808
  Transmission Date: 20070707
  Serious: Yes (Other)
  Sender: FDA-Public Use
  Company Number: PHEH2006US08709

PATIENT
  Age: 38 Year
  Sex: Male
  Weight: 37 kg

DRUGS (6)
  1. EXJADE [Suspect]
     Indication: IRON OVERLOAD
     Dosage: 1125 MG, QD, ORAL
     Route: 048
     Dates: start: 20060419, end: 20060426
  2. EXJADE [Suspect]
     Indication: IRON OVERLOAD
     Dosage: 1125 MG, QD, ORAL
     Route: 048
     Dates: start: 20060514, end: 20060518
  3. METHYLPREDNISOLONE [Concomitant]
  4. MYCELEX [Concomitant]
  5. TRAMADOL HCL [Concomitant]
  6. PARENTERAL NUTRITION (PARENTERAL NUTRITION) [Concomitant]

REACTIONS (5)
  - ALANINE AMINOTRANSFERASE INCREASED [None]
  - ASPARTATE AMINOTRANSFERASE INCREASED [None]
  - BLOOD ALKALINE PHOSPHATASE INCREASED [None]
  - HEPATITIS [None]
  - TRANSAMINASES INCREASED [None]
